FAERS Safety Report 8775172 (Version 1)
Quarter: 2012Q4

REPORT INFORMATION
  Report Type: 
  Country: FR (occurrence: FR)
  Receive Date: 20120910
  Receipt Date: 20120910
  Transmission Date: 20130627
  Serious: Yes (Other)
  Sender: FDA-Public Use
  Company Number: FR-TEVA-319633ISR

PATIENT
  Age: 41 None
  Sex: Female

DRUGS (4)
  1. COPAXONE [Suspect]
     Dosage: 20 Milligram Daily;
     Route: 058
     Dates: start: 20120113
  2. BISOCE 2.5 MG [Concomitant]
     Indication: HYPERTENSION
     Dosage: 2.5 Milligram Daily;
     Route: 048
     Dates: start: 2011
  3. SERESTA [Concomitant]
     Dosage: .5 Tablet Daily;
  4. BETAHISTINE [Concomitant]
     Dates: start: 2011

REACTIONS (5)
  - Refraction disorder [Not Recovered/Not Resolved]
  - Eye haemorrhage [Recovered/Resolved]
  - Headache [Recovered/Resolved]
  - Pre-existing condition improved [Not Recovered/Not Resolved]
  - Presbyopia [Not Recovered/Not Resolved]
